FAERS Safety Report 6145206-9 (Version None)
Quarter: 2009Q2

REPORT INFORMATION
  Report Type: 
  Country: None (occurrence: None)
  Receive Date: 20090401
  Receipt Date: 20090323
  Transmission Date: 20091009
  Serious: Yes (Death, Hospitalization)
  Sender: FDA-Public Use
  Company Number: 2008-04758

PATIENT
  Age: 33 Year
  Sex: Female

DRUGS (8)
  1. VELCADE [Suspect]
     Indication: HEPATOSPLENIC T-CELL LYMPHOMA
     Dosage: 1 MG/M2,INTRAVENOUS
     Route: 042
     Dates: start: 20070523, end: 20070619
  2. ADRIAMYCIN PFS [Suspect]
     Indication: HEPATOSPLENIC T-CELL LYMPHOMA
     Dosage: 75 MG/M2,  INTRAVENOUS
     Route: 042
     Dates: start: 20070523, end: 20070619
  3. CYCLOPHOSPHAMIDE [Suspect]
     Indication: HEPATOSPLENIC T-CELL LYMPHOMA
     Dosage: 1200 MG/M2, INTRAVENOUS
     Route: 042
     Dates: start: 20070523, end: 20070619
  4. VINCRISTINE [Suspect]
     Indication: HEPATOSPLENIC T-CELL LYMPHOMA
     Dosage: 1.2 MG/M2
  5. BLEOMYCIN SULFATE [Suspect]
     Indication: HEPATOSPLENIC T-CELL LYMPHOMA
     Dosage: 15 MG, INTRAVENOUS
     Route: 042
     Dates: start: 20070523, end: 20070619
  6. PREDNISONE TAB [Suspect]
     Indication: HEPATOSPLENIC T-CELL LYMPHOMA
     Dosage: 60 MG/M2, INTRAVENOUS
     Route: 042
     Dates: start: 20070523, end: 20070619
  7. GEMCITABINE HYDROCHLORIDE(GEMCITABINE HYDROCHLORIDE) [Suspect]
     Indication: HEPATOSPLENIC T-CELL LYMPHOMA
     Dosage: INTRAVENOUS
     Route: 042
     Dates: start: 20061229, end: 20070619
  8. VINORELBINE TARTRATE [Suspect]
     Indication: HEPATOSPLENIC T-CELL LYMPHOMA
     Dosage: INTRAVENOUS

REACTIONS (9)
  - ABDOMINAL PAIN [None]
  - BRADYCARDIA [None]
  - CARDIAC ARREST [None]
  - FEBRILE NEUTROPENIA [None]
  - HEPATOSPLENIC T-CELL LYMPHOMA [None]
  - MALIGNANT NEOPLASM PROGRESSION [None]
  - NEUROTOXICITY [None]
  - SEPSIS [None]
  - STEM CELL TRANSPLANT [None]
